FAERS Safety Report 6501650-9 (Version None)
Quarter: 2009Q4

REPORT INFORMATION
  Report Type: 
  Country: None (occurrence: None)
  Receive Date: 20091214
  Receipt Date: 20091214
  Transmission Date: 20100525
  Serious: Yes (Death)
  Sender: FDA-Public Use
  Company Number: None

PATIENT
  Age: 46 Year
  Sex: Female
  Weight: 69.4003 kg

DRUGS (2)
  1. AMRUBICIN [Suspect]
     Indication: NON-SMALL CELL LUNG CANCER
     Dosage: 66MG IV : INTRAVENOUS (NOT OTHERWISE SPECIFIED)
     Route: 042
     Dates: start: 20091116, end: 20091118
  2. CYCLOPHOSPHAMIDE [Concomitant]

REACTIONS (3)
  - DISEASE PROGRESSION [None]
  - NEOPLASM MALIGNANT [None]
  - PLEURAL EFFUSION [None]
